FAERS Safety Report 5728534-8 (Version None)
Quarter: 2008Q2

REPORT INFORMATION
  Report Type: 
  Country: None (occurrence: None)
  Receive Date: 20080502
  Receipt Date: 20080502
  Transmission Date: 20081010
  Serious: Yes (Life-Threatening, Hospitalization)
  Sender: FDA-Public Use
  Company Number: None

PATIENT
  Age: 55 Year
  Sex: Female

DRUGS (1)
  1. ZIPRASIDONE HCL [Suspect]
     Indication: BIPOLAR I DISORDER
     Dosage: 40 MG  BID  PO
     Route: 048
     Dates: start: 20050202, end: 20080430

REACTIONS (15)
  - ALCOHOL ABUSE [None]
  - DIZZINESS [None]
  - ELECTROCARDIOGRAM QT PROLONGED [None]
  - HAEMATEMESIS [None]
  - HAEMORRHAGE [None]
  - HALLUCINATION [None]
  - HYPOKALAEMIA [None]
  - HYPOMAGNESAEMIA [None]
  - INCOHERENT [None]
  - OVERDOSE [None]
  - PURPURA [None]
  - SUICIDAL IDEATION [None]
  - TACHYCARDIA [None]
  - VENTRICULAR FIBRILLATION [None]
  - VOMITING [None]
